FAERS Safety Report 23656917 (Version 2)
Quarter: 2024Q4

REPORT INFORMATION
  Report Type: Spontaneous
  Country: US (occurrence: US)
  Receive Date: 20240321
  Receipt Date: 20241118
  Transmission Date: 20250115
  Serious: Yes (Other)
  Sender: CSL BEHRING
  Company Number: US-BEH-2024169746

PATIENT
  Sex: Male

DRUGS (12)
  1. IDELVION [Suspect]
     Active Substance: COAGULATION FACTOR IX RECOMBINANT HUMAN
     Indication: Factor IX deficiency
     Dosage: 500 INTERNATIONAL UNIT (6750-8250, COMBINED WITH IDELVION 3500), EVERY 14 DAYS
     Route: 042
     Dates: start: 202004
  2. IDELVION [Suspect]
     Active Substance: COAGULATION FACTOR IX RECOMBINANT HUMAN
     Indication: Factor IX deficiency
     Dosage: 500 INTERNATIONAL UNIT (6750-8250, COMBINED WITH IDELVION 3500), EVERY 14 DAYS
     Route: 042
     Dates: start: 202004
  3. IDELVION [Suspect]
     Active Substance: COAGULATION FACTOR IX RECOMBINANT HUMAN
     Dosage: 1500 INTERNATIONAL UNIT (4500-5500, COMBINED WITH IDELVION 3500) AS NEEDED FOR MINOR BLEEDS
     Route: 042
     Dates: start: 202004
  4. IDELVION [Suspect]
     Active Substance: COAGULATION FACTOR IX RECOMBINANT HUMAN
     Dosage: 1500 INTERNATIONAL UNIT (4500-5500, COMBINED WITH IDELVION 3500) AS NEEDED FOR MINOR BLEEDS
     Route: 042
     Dates: start: 202004
  5. IDELVION [Suspect]
     Active Substance: COAGULATION FACTOR IX RECOMBINANT HUMAN
     Dosage: 3000 INTERNATIONAL UNIT (9000-11000, COMBINED WITH IDELVION 3500) AS NEEDED FOR MAJOR BLEEDS
     Route: 042
     Dates: start: 202004
  6. IDELVION [Suspect]
     Active Substance: COAGULATION FACTOR IX RECOMBINANT HUMAN
     Dosage: 3000 INTERNATIONAL UNIT (9000-11000, COMBINED WITH IDELVION 3500) AS NEEDED FOR MAJOR BLEEDS
     Route: 042
     Dates: start: 202004
  7. IDELVION [Suspect]
     Active Substance: COAGULATION FACTOR IX RECOMBINANT HUMAN
     Indication: Factor IX deficiency
     Dosage: 7000 INTERNATIONAL UNIT (6750-8250, COMBINED WITH IDELVION), EVERY 14 DAYS
     Route: 042
     Dates: start: 202004
  8. IDELVION [Suspect]
     Active Substance: COAGULATION FACTOR IX RECOMBINANT HUMAN
     Indication: Factor IX deficiency
     Dosage: 7000 INTERNATIONAL UNIT (6750-8250, COMBINED WITH IDELVION), EVERY 14 DAYS
     Route: 042
     Dates: start: 202004
  9. IDELVION [Suspect]
     Active Substance: COAGULATION FACTOR IX RECOMBINANT HUMAN
     Dosage: 3500 INTERNATIONAL UNIT (4500-5500, COMBINED WITH IDELVION), AS NEEDED FOR MINOR BLEEDS
     Route: 042
     Dates: start: 202004
  10. IDELVION [Suspect]
     Active Substance: COAGULATION FACTOR IX RECOMBINANT HUMAN
     Dosage: 3500 INTERNATIONAL UNIT (4500-5500, COMBINED WITH IDELVION), AS NEEDED FOR MINOR BLEEDS
     Route: 042
     Dates: start: 202004
  11. IDELVION [Suspect]
     Active Substance: COAGULATION FACTOR IX RECOMBINANT HUMAN
     Dosage: 7000 INTERNATIONAL UNIT (9000-11000, COMBINED WITH IDELVION), AS NEEDED FOR MAJOR BLEEDS
     Route: 042
     Dates: start: 202004
  12. IDELVION [Suspect]
     Active Substance: COAGULATION FACTOR IX RECOMBINANT HUMAN
     Dosage: 7000 INTERNATIONAL UNIT (9000-11000, COMBINED WITH IDELVION), AS NEEDED FOR MAJOR BLEEDS
     Route: 042
     Dates: start: 202004

REACTIONS (4)
  - Contusion [Unknown]
  - Joint swelling [Recovered/Resolved]
  - Contusion [Unknown]
  - Product dose omission in error [Unknown]
